FAERS Safety Report 6701763-2 (Version None)
Quarter: 2010Q2

REPORT INFORMATION
  Report Type: 
  Country: None (occurrence: None)
  Receive Date: 20100429
  Receipt Date: 20100422
  Transmission Date: 20101027
  Serious: Yes (Hospitalization)
  Sender: FDA-Public Use
  Company Number: PHHY2010CA04940

PATIENT
  Sex: Female

DRUGS (4)
  1. EXJADE [Suspect]
     Indication: MYELODYSPLASTIC SYNDROME
     Dosage: 1000 MG, QD
     Route: 048
     Dates: start: 20100119
  2. ELTROXIN [Concomitant]
     Dosage: 1 DF, UNK
     Route: 048
  3. RABEPRAZOLE SODIUM [Concomitant]
     Dosage: 10 MG, QD
     Route: 048
  4. APO-LORAZEPAM [Concomitant]
     Dosage: 1 DF, QD
     Route: 048

REACTIONS (11)
  - ABDOMINAL PAIN UPPER [None]
  - ASTHENIA [None]
  - DECREASED APPETITE [None]
  - ERYTHEMA [None]
  - FATIGUE [None]
  - GINGIVAL PAIN [None]
  - HAEMOGLOBIN DECREASED [None]
  - ORAL PAIN [None]
  - PROCTALGIA [None]
  - TOOTH EXTRACTION [None]
  - TOOTH INFECTION [None]
